FAERS Safety Report 4596881-1 (Version None)
Quarter: 2005Q1

REPORT INFORMATION
  Report Type: 
  Country: None (occurrence: None)
  Receive Date: 20050225
  Receipt Date: 20050211
  Transmission Date: 20050727
  Serious: Yes (Hospitalization)
  Sender: FDA-Public Use
  Company Number: SU-2005-003118

PATIENT
  Age: 65 Year
  Sex: Male

DRUGS (1)
  1. BENICAR HCT [Suspect]
     Indication: HYPERTENSION
     Dosage: 20.125 MG QD; PO
     Route: 048
     Dates: start: 20050204, end: 20050206

REACTIONS (11)
  - CEREBROVASCULAR ACCIDENT [None]
  - CONVULSION [None]
  - EXCITABILITY [None]
  - FEELING HOT AND COLD [None]
  - HEMIPARESIS [None]
  - HYPOAESTHESIA [None]
  - INFLUENZA LIKE ILLNESS [None]
  - LOSS OF CONSCIOUSNESS [None]
  - REFUSAL OF TREATMENT BY PATIENT [None]
  - SOMNOLENCE [None]
  - SYNCOPE [None]
